FAERS Safety Report 9918649 (Version 2)
Quarter: 2014Q1

REPORT INFORMATION
  Report Type: Spontaneous
  Country: PK (occurrence: PK)
  Receive Date: 20140224
  Receipt Date: 20140224
  Transmission Date: 20141002
  Serious: Yes (Death, Other)
  Sender: FDA-Public Use
  Company Number: PK-BRISTOL-MYERS SQUIBB COMPANY-20192951

PATIENT
  Age: 31 Year
  Sex: Male

DRUGS (1)
  1. YERVOY [Suspect]
     Indication: METASTATIC MALIGNANT MELANOMA
     Dosage: 1DF: 5MG/ML CONCENTRATE SOLUTION FOR INFUSION?LAST DOSE : 20JAN14
     Dates: start: 20140120

REACTIONS (2)
  - Cardiac arrest [Fatal]
  - Heart rate abnormal [Unknown]
